FAERS Safety Report 5305848-7 (Version None)
Quarter: 2007Q2

REPORT INFORMATION
  Report Type: 
  Country: None (occurrence: None)
  Receive Date: 20070424
  Receipt Date: 20070413
  Transmission Date: 20071010
  Serious: Yes (Other)
  Sender: FDA-Public Use
  Company Number: PHBS2007IT06591

PATIENT
  Age: 67 Year
  Sex: Female

DRUGS (1)
  1. ZOMETA [Suspect]
     Indication: METASTASES TO BONE
     Dates: start: 20040101

REACTIONS (6)
  - BONE DISORDER [None]
  - LIP PAIN [None]
  - LYMPHOCYTIC INFILTRATION [None]
  - MOUTH ULCERATION [None]
  - OSTEITIS [None]
  - OSTEONECROSIS [None]
